FAERS Safety Report 15383942 (Version 5)
Quarter: 2021Q4

REPORT INFORMATION
  Report Type: Report from Study
  Country: US (occurrence: US)
  Receive Date: 20180914
  Receipt Date: 20211104
  Transmission Date: 20220303
  Serious: Yes (Hospitalization, Other)
  Sender: FDA-Public Use
  Company Number: US-ASTELLAS-2018US033917

PATIENT
  Sex: Male

DRUGS (2)
  1. ENZALUTAMIDE [Suspect]
     Active Substance: ENZALUTAMIDE
     Indication: Prostate cancer
     Route: 048
     Dates: start: 20170605, end: 20211029
  2. ABIRATERONE [Concomitant]
     Active Substance: ABIRATERONE
     Indication: Product used for unknown indication
     Route: 065

REACTIONS (5)
  - Diabetes mellitus [Unknown]
  - Loss of consciousness [Unknown]
  - Hyperhidrosis [Not Recovered/Not Resolved]
  - Asthenia [Unknown]
  - Fatigue [Not Recovered/Not Resolved]
